FAERS Safety Report 20824458 (Version 3)
Quarter: 2022Q3

REPORT INFORMATION
  Report Type: Spontaneous
  Country: CA (occurrence: CA)
  Receive Date: 20220513
  Receipt Date: 20220708
  Transmission Date: 20221027
  Serious: Yes (Other)
  Sender: FDA-Public Use
  Company Number: CA-CELGENE-CAN-20210100672

PATIENT
  Age: 48 Year
  Sex: Female

DRUGS (1)
  1. REVLIMID [Suspect]
     Active Substance: LENALIDOMIDE
     Indication: Plasma cell myeloma
     Dosage: 28/28 DAYS
     Route: 048
     Dates: start: 20200421

REACTIONS (1)
  - Human chorionic gonadotropin increased [Unknown]
